FAERS Safety Report 14298862 (Version 1)
Quarter: 2017Q4

REPORT INFORMATION
  Report Type: Spontaneous
  Country: US (occurrence: US)
  Receive Date: 20171216
  Receipt Date: 20171216
  Transmission Date: 20180321
  Serious: Yes (Hospitalization)
  Sender: FDA-Public Use
  Company Number: None

PATIENT
  Age: 64 Year
  Sex: Male

DRUGS (27)
  1. CLONIDINE. [Concomitant]
     Active Substance: CLONIDINE
  2. FUROSEMIDE. [Concomitant]
     Active Substance: FUROSEMIDE
  3. HYDRALAZINE [Concomitant]
     Active Substance: HYDRALAZINE HYDROCHLORIDE
  4. LEVOFLOXACIN. [Concomitant]
     Active Substance: LEVOFLOXACIN
  5. POLYETH [Concomitant]
  6. VERAPAMIL [Concomitant]
     Active Substance: VERAPAMIL HYDROCHLORIDE
  7. PROCRIT [Suspect]
     Active Substance: ERYTHROPOIETIN
     Indication: CHRONIC KIDNEY DISEASE
     Dosage: 1 ML QW UNDER THE SKIN
     Route: 058
     Dates: start: 20171117
  8. ALBUTEROL. [Concomitant]
     Active Substance: ALBUTEROL
  9. AMIODARONE [Concomitant]
     Active Substance: AMIODARONE
  10. METOPROLOL TARTRATE. [Concomitant]
     Active Substance: METOPROLOL TARTRATE
  11. VITAMIN D [Concomitant]
     Active Substance: CHOLECALCIFEROL
  12. ATORVASTATIN [Concomitant]
     Active Substance: ATORVASTATIN
  13. AZITHROMYCIN ANHYDROUS. [Concomitant]
     Active Substance: AZITHROMYCIN ANHYDROUS
  14. LANSOPRAZOLE. [Concomitant]
     Active Substance: LANSOPRAZOLE
  15. LISINOPRIL. [Concomitant]
     Active Substance: LISINOPRIL
  16. FERROUS SULF [Concomitant]
     Active Substance: FERROUS SULFATE
  17. SERTRALINE [Concomitant]
     Active Substance: SERTRALINE HYDROCHLORIDE
  18. CALCITRIOL. [Concomitant]
     Active Substance: CALCITRIOL
  19. HUMALOG [Concomitant]
     Active Substance: INSULIN LISPRO
  20. PREDNISONE. [Concomitant]
     Active Substance: PREDNISONE
  21. SMZ/TMP [Concomitant]
     Active Substance: SULFAMETHOXAZOLE\TRIMETHOPRIM
  22. DOK [Concomitant]
     Active Substance: DOCUSATE SODIUM
  23. LEVEMIR [Concomitant]
     Active Substance: INSULIN DETEMIR
  24. NYSTATIN. [Concomitant]
     Active Substance: NYSTATIN
  25. SENNA [Concomitant]
     Active Substance: SENNA LEAF\SENNOSIDES\SENNOSIDES A AND B
  26. SEVELAMER [Concomitant]
     Active Substance: SEVELAMER
  27. WOUN DRES GEL [Concomitant]

REACTIONS (1)
  - Pneumonia [None]

NARRATIVE: CASE EVENT DATE: 201712
